FAERS Safety Report 23779313 (Version 1)
Quarter: 2024Q2

REPORT INFORMATION
  Report Type: Spontaneous
  Country: NL (occurrence: None)
  Receive Date: 20240424
  Receipt Date: 20240424
  Transmission Date: 20240715
  Serious: Yes (Life-Threatening)
  Sender: FDA-Public Use
  Company Number: 2024A096203

PATIENT
  Age: 78 Year
  Sex: Female
  Weight: 106 kg

DRUGS (13)
  1. OMEPRAZOLE [Suspect]
     Active Substance: OMEPRAZOLE
     Indication: Abdominal discomfort
     Dosage: 1 X PER DAY 1 PIECE
     Dates: start: 20240208, end: 20240321
  2. SIMVASTATIN [Concomitant]
     Active Substance: SIMVASTATIN
     Dosage: FILM-COATED TABLET, 20 MG (MILLIGRAM)20.0MG UNKNOWN
  3. ACETAMINOPHEN [Concomitant]
     Active Substance: ACETAMINOPHEN
     Dosage: CAPSULE, 500 MG (MILLIGRAM)500.0MG UNKNOWN
  4. DIGOXINE/LANOXIN [Concomitant]
     Dosage: TABLET, 0,125 MG (MILLIGRAM)0.125MG UNKNOWN
  5. METOPROLOL [Concomitant]
     Active Substance: METOPROLOL
     Dosage: TABLET, 50 MG (MILLIGRAM)
  6. FAMOTIDINE [Concomitant]
     Active Substance: FAMOTIDINE
     Dosage: TABLET, 20 MG (MILLIGRAM)
  7. RISEDRONINEZUUR [Concomitant]
     Dosage: FILM COATED TABLET, 35 MG (MILLIGRAM)
  8. ELIQUIS [Concomitant]
     Active Substance: APIXABAN
     Dosage: TABLET, 5 MG (MILLIGRAM)
  9. DAVITAMON K [Concomitant]
     Dosage: SKIN HAIR NAILS 1000 MG ONCE A DAY
  10. FLUTICASONE PROPIONATE\SALMETEROL XINAFOATE [Concomitant]
     Active Substance: FLUTICASONE PROPIONATE\SALMETEROL XINAFOATE
     Dosage: INHALATION POWDER, 50/250 G/DOSE (MICROGRAMS PER DOSE)
  11. SODIUM/CALCIUM CARBONATE/COLECALCIFEROL [Concomitant]
     Dosage: CHEWABLE TABLET, 1.25 G (GRAM)/800 UNITS
  12. ENALAPRIL [Concomitant]
     Active Substance: ENALAPRIL
     Dosage: TABLET, 5 MG (MILLIGRAM)
  13. PREGABALIN [Concomitant]
     Active Substance: PREGABALIN
     Dosage: CAPSULE, 75 MG (MILLIGRAM)

REACTIONS (3)
  - Hypokalaemia [Unknown]
  - Hypocalcaemia [Unknown]
  - Hypomagnesaemia [Unknown]
